FAERS Safety Report 4518636-6 (Version None)
Quarter: 2004Q4

REPORT INFORMATION
  Report Type: 
  Country: None (occurrence: None)
  Receive Date: 20041101
  Receipt Date: 20040610
  Transmission Date: 20050328
  Serious: Yes (Other)
  Sender: FDA-Public Use
  Company Number: 200413741US

PATIENT
  Age: 57 Year
  Sex: Male

DRUGS (1)
  1. ANZEMET [Suspect]
     Indication: SHOULDER ARTHROPLASTY
     Dosage: 12.5 MG IV
     Route: 042

REACTIONS (1)
  - ANAPHYLACTIC REACTION [None]
